FAERS Safety Report 9740023 (Version 3)
Quarter: 2014Q3

REPORT INFORMATION
  Report Type: Spontaneous
  Country: US (occurrence: US)
  Receive Date: 20131209
  Receipt Date: 20140825
  Transmission Date: 20150326
  Serious: No
  Sender: FDA-Public Use
  Company Number: US-009507513-1312USA003379

PATIENT
  Sex: Female
  Weight: 69.4 kg

DRUGS (1)
  1. NUVARING [Suspect]
     Active Substance: ETHINYL ESTRADIOL\ETONOGESTREL
     Indication: CONTRACEPTION
     Dosage: 0.12-0.15  PV X 3 WEEKS
     Route: 067
     Dates: start: 201105, end: 20111231

REACTIONS (8)
  - Stress [Unknown]
  - Panic reaction [Unknown]
  - Arthralgia [Unknown]
  - Paraesthesia [Unknown]
  - Onychomycosis [Unknown]
  - Anxiety disorder [Unknown]
  - Hypoaesthesia [Unknown]
  - Deep vein thrombosis [Unknown]

NARRATIVE: CASE EVENT DATE: 20111209
